FAERS Safety Report 8691435 (Version 2)
Quarter: 2012Q4

REPORT INFORMATION
  Report Type: 
  Country: US (occurrence: US)
  Receive Date: 20120730
  Receipt Date: 20120831
  Transmission Date: 20130627
  Serious: No
  Sender: FDA-Public Use
  Company Number: US-PFIZER INC-2012179615

PATIENT
  Age: 61 Year
  Sex: Male
  Weight: 81.63 kg

DRUGS (34)
  1. VIAGRA [Suspect]
     Indication: ERECTILE DYSFUNCTION
     Dosage: 25 mg, as needed
     Route: 048
  2. VIAGRA [Suspect]
     Dosage: 50 mg, as needed
     Route: 048
  3. ATENOLOL [Concomitant]
     Indication: HYPERTENSION
     Dosage: 25 mg, 2x/day
  4. ATENOLOL [Concomitant]
     Indication: DIABETES MELLITUS
  5. ATENOLOL [Concomitant]
     Indication: BLOOD CHOLESTEROL ABNORMAL
  6. ATENOLOL [Concomitant]
     Indication: CARDIAC DISORDER
  7. LISINOPRIL [Concomitant]
     Indication: HYPERTENSION
     Dosage: 40 mg, 2x/day
  8. LISINOPRIL [Concomitant]
     Indication: DIABETES MELLITUS
  9. LISINOPRIL [Concomitant]
     Indication: CARDIAC DISORDER
  10. LISINOPRIL [Concomitant]
     Indication: BLOOD CHOLESTEROL ABNORMAL
  11. AMLODIPINE [Concomitant]
     Indication: HYPERTENSION
     Dosage: 5 mg, 2x/day
  12. AMLODIPINE [Concomitant]
     Indication: DIABETES MELLITUS
  13. AMLODIPINE [Concomitant]
     Indication: CARDIAC DISORDER
  14. AMLODIPINE [Concomitant]
     Indication: BLOOD CHOLESTEROL ABNORMAL
  15. ZETIA [Concomitant]
     Indication: HYPERTENSION
     Dosage: 10 mg, daily
  16. ZETIA [Concomitant]
     Indication: DIABETES MELLITUS
  17. ZETIA [Concomitant]
     Indication: CARDIAC DISORDER
  18. ZETIA [Concomitant]
     Indication: BLOOD CHOLESTEROL ABNORMAL
  19. METFORMIN [Concomitant]
     Indication: HYPERTENSION
     Dosage: 1000 mg, 2x/day
  20. METFORMIN [Concomitant]
     Indication: DIABETES MELLITUS
  21. METFORMIN [Concomitant]
     Indication: CARDIAC DISORDER
  22. METFORMIN [Concomitant]
     Indication: BLOOD CHOLESTEROL ABNORMAL
  23. LIPITOR [Concomitant]
     Indication: HYPERTENSION
     Dosage: 10 mg, daily
  24. LIPITOR [Concomitant]
     Indication: DIABETES MELLITUS
  25. LIPITOR [Concomitant]
     Indication: CARDIAC DISORDER
  26. LIPITOR [Concomitant]
     Indication: BLOOD CHOLESTEROL ABNORMAL
  27. ACETYLSALICYLIC ACID [Concomitant]
     Indication: HYPERTENSION
     Dosage: 81 mg, daily
  28. ACETYLSALICYLIC ACID [Concomitant]
     Indication: DIABETES MELLITUS
  29. ACETYLSALICYLIC ACID [Concomitant]
     Indication: BLOOD CHOLESTEROL ABNORMAL
  30. ACETYLSALICYLIC ACID [Concomitant]
     Indication: CARDIAC DISORDER
  31. OMEPRAZOLE [Concomitant]
     Indication: HYPERTENSION
     Dosage: 20 mg, UNK
  32. OMEPRAZOLE [Concomitant]
     Indication: DIABETES MELLITUS
  33. OMEPRAZOLE [Concomitant]
     Indication: CARDIAC DISORDER
  34. OMEPRAZOLE [Concomitant]
     Indication: BLOOD CHOLESTEROL ABNORMAL

REACTIONS (2)
  - Glycosylated haemoglobin increased [Unknown]
  - Flushing [Recovered/Resolved]
